FAERS Safety Report 4962627-8 (Version None)
Quarter: 2006Q1

REPORT INFORMATION
  Report Type: 
  Country: None (occurrence: None)
  Receive Date: 20060201
  Receipt Date: 20051107
  Transmission Date: 20060701
  Serious: No
  Sender: FDA-Public Use
  Company Number: 2005PV004095

PATIENT
  Age: 63 Year
  Sex: Female
  Weight: 105.2345 kg

DRUGS (8)
  1. BYETTA [Suspect]
     Indication: DIABETES MELLITUS NON-INSULIN-DEPENDENT
     Dosage: 10MCG;BID;SC, 5 MCG;BID;SC
     Route: 058
     Dates: start: 20051003, end: 20051030
  2. BYETTA [Suspect]
     Indication: DIABETES MELLITUS NON-INSULIN-DEPENDENT
     Dosage: 10MCG;BID;SC, 5 MCG;BID;SC
     Route: 058
     Dates: start: 20051031, end: 20051102
  3. LANTUS [Concomitant]
  4. AMARYL [Concomitant]
  5. ACTOS [Concomitant]
  6. SYNTHROID [Concomitant]
  7. ZOCOR [Concomitant]
  8. HYZAAR [Concomitant]

REACTIONS (2)
  - BLOOD GLUCOSE DECREASED [None]
  - BLOOD GLUCOSE INCREASED [None]
